FAERS Safety Report 5920491-4 (Version None)
Quarter: 2008Q4

REPORT INFORMATION
  Report Type: 
  Country: None (occurrence: None)
  Receive Date: 20081016
  Receipt Date: 20081013
  Transmission Date: 20090506
  Serious: Yes (Other)
  Sender: FDA-Public Use
  Company Number: A0752218A

PATIENT
  Sex: Male

DRUGS (1)
  1. AMOXICILLIN + CLAVULANATE POTASSIUM [Suspect]
     Indication: DRUG USE FOR UNKNOWN INDICATION
     Dosage: 875MG UNKNOWN
     Route: 065

REACTIONS (1)
  - LARYNGEAL OEDEMA [None]
